FAERS Safety Report 5253151-6 (Version None)
Quarter: 2007Q1

REPORT INFORMATION
  Report Type: 
  Country: None (occurrence: None)
  Receive Date: 20070301
  Receipt Date: 20070223
  Transmission Date: 20070707
  Serious: Yes (Disabling)
  Sender: FDA-Public Use
  Company Number: GB-GLAXOSMITHKLINE-B0460310A

PATIENT
  Age: 59 Year
  Sex: Male

DRUGS (3)
  1. AUGMENTIN '125' [Suspect]
     Indication: URINARY TRACT INFECTION
     Dosage: 375MG THREE TIMES PER DAY
     Route: 048
     Dates: start: 20061101, end: 20061129
  2. LANSOPRAZOLE [Concomitant]
     Indication: DYSPEPSIA
     Route: 048
  3. TAMSULOSIN HCL [Concomitant]
     Indication: PROSTATIC DISORDER
     Route: 048

REACTIONS (4)
  - BLOOD BILIRUBIN INCREASED [None]
  - IMPAIRED WORK ABILITY [None]
  - JAUNDICE [None]
  - PRURITUS [None]
